FAERS Safety Report 12037566 (Version 1)
Quarter: 2016Q1

REPORT INFORMATION
  Report Type: Spontaneous
  Country: US (occurrence: None)
  Receive Date: 20160205
  Receipt Date: 20160205
  Transmission Date: 20160526
  Serious: No
  Sender: FDA-Public Use
  Company Number: None

PATIENT
  Age: 88 Year
  Sex: Male

DRUGS (1)
  1. NEXAVAR [Suspect]
     Active Substance: SORAFENIB
     Indication: HEPATOCELLULAR CARCINOMA
     Route: 048
     Dates: start: 20160129

REACTIONS (6)
  - Fatigue [None]
  - Dyspnoea [None]
  - Insomnia [None]
  - Decreased appetite [None]
  - Musculoskeletal stiffness [None]
  - Joint stiffness [None]

NARRATIVE: CASE EVENT DATE: 201601
